FAERS Safety Report 5373133-3 (Version None)
Quarter: 2007Q2

REPORT INFORMATION
  Report Type: 
  Country: None (occurrence: None)
  Receive Date: 20070619
  Receipt Date: 20070426
  Transmission Date: 20071010
  Serious: No
  Sender: FDA-Public Use
  Company Number: 2007US001164

PATIENT
  Age: 83 Year
  Sex: Female

DRUGS (1)
  1. VESICARE [Suspect]
     Indication: BLADDER DISORDER
     Dosage: 5 MG
     Dates: start: 20070323

REACTIONS (3)
  - BLOOD URINE PRESENT [None]
  - CYSTITIS [None]
  - MEDICATION ERROR [None]
